FAERS Safety Report 25019370 (Version 2)
Quarter: 2025Q2

REPORT INFORMATION
  Report Type: Spontaneous
  Country: CA (occurrence: CA)
  Receive Date: 20250227
  Receipt Date: 20250504
  Transmission Date: 20250717
  Serious: Yes (Hospitalization)
  Sender: TAKEDA
  Company Number: CA-TAKEDA-2025TUS019651

PATIENT
  Age: 77 Year
  Sex: Female
  Weight: 50 kg

DRUGS (2)
  1. MESALAMINE [Suspect]
     Active Substance: MESALAMINE
     Indication: Colitis
     Dosage: 4800 MILLIGRAM, QOD
     Dates: start: 20230105, end: 20230110
  2. MESALAMINE [Suspect]
     Active Substance: MESALAMINE
     Dosage: 1000 MILLIGRAM, QID
     Dates: start: 202405

REACTIONS (7)
  - Cough [Recovered/Resolved]
  - Eosinophil count increased [Recovered/Resolved]
  - General physical health deterioration [Recovered/Resolved]
  - Weight decreased [Recovered/Resolved]
  - Upper respiratory tract infection [Recovered/Resolved]
  - Asthenia [Recovered/Resolved]
  - Pyrexia [Recovered/Resolved]
